FAERS Safety Report 21183840 (Version 1)
Quarter: 2022Q3

REPORT INFORMATION
  Report Type: Spontaneous
  Country: US (occurrence: US)
  Receive Date: 20220808
  Receipt Date: 20220808
  Transmission Date: 20221027
  Serious: No
  Sender: FDA-Public Use
  Company Number: US-JNJFOC-20220810526

PATIENT
  Sex: Male

DRUGS (2)
  1. MENS ROGAINE EXTRA STRENGTH [Suspect]
     Active Substance: MINOXIDIL
     Indication: Alopecia
     Dosage: DOSE: CAPFUL
     Route: 061
     Dates: start: 202108
  2. MENS ROGAINE EXTRA STRENGTH [Suspect]
     Active Substance: MINOXIDIL
     Dosage: DOSE: CAPFUL
     Route: 061

REACTIONS (2)
  - Alopecia [Unknown]
  - Overdose [Unknown]

NARRATIVE: CASE EVENT DATE: 20210801
